FAERS Safety Report 6993436-6 (Version None)
Quarter: 2010Q3

REPORT INFORMATION
  Report Type: 
  Country: None (occurrence: None)
  Receive Date: 20100917
  Receipt Date: 20090923
  Transmission Date: 20110219
  Serious: No
  Sender: FDA-Public Use
  Company Number: US-ASTRAZENECA-2009SE15104

PATIENT
  Age: 532 Month
  Sex: Female
  Weight: 70.3 kg

DRUGS (6)
  1. SEROQUEL [Suspect]
     Indication: MIGRAINE
     Route: 048
     Dates: start: 20030101, end: 20090801
  2. TOPAMAX [Concomitant]
  3. PROPRANOLOL [Concomitant]
  4. WELLBUTRIN [Concomitant]
  5. SYMBALTA [Concomitant]
  6. TREXIMET [Concomitant]

REACTIONS (4)
  - ALOPECIA [None]
  - NAUSEA [None]
  - SOMNOLENCE [None]
  - WEIGHT INCREASED [None]
